FAERS Safety Report 6894393-3 (Version None)
Quarter: 2010Q3

REPORT INFORMATION
  Report Type: 
  Country: None (occurrence: None)
  Receive Date: 20100726
  Receipt Date: 20100712
  Transmission Date: 20110219
  Serious: Yes (Hospitalization)
  Sender: FDA-Public Use
  Company Number: 1000015092

PATIENT
  Age: 20 Year
  Sex: Male

DRUGS (4)
  1. CARBAMAZEPINE [Suspect]
     Indication: SCHIZOPHRENIA
     Dosage: 800 MG (800 MG,1 IN 1 D)
  2. HALOPERIDOL [Suspect]
     Indication: SCHIZOPHRENIA
     Dosage: 10 MG (10 MG,1 IN 1 D)
  3. LORAZEPAM [Suspect]
     Indication: SCHIZOPHRENIA
     Dosage: 2 MG (2 MG,1 IN 1D)
  4. PIMOZIDE [Suspect]
     Indication: SCHIZOPHRENIA
     Dosage: 12 MG (4 MG,3 IN 1 D)

REACTIONS (8)
  - ATRIOVENTRICULAR BLOCK COMPLETE [None]
  - CARDIAC FAILURE [None]
  - CARDIOMYOPATHY ALCOHOLIC [None]
  - CONGESTIVE CARDIOMYOPATHY [None]
  - EJECTION FRACTION DECREASED [None]
  - ELECTROCARDIOGRAM QRS COMPLEX ABNORMAL [None]
  - ELECTROCARDIOGRAM QT PROLONGED [None]
  - SYNCOPE [None]
